FAERS Safety Report 5246869-2 (Version None)
Quarter: 2007Q1

REPORT INFORMATION
  Report Type: 
  Country: None (occurrence: None)
  Receive Date: 20070226
  Receipt Date: 20070215
  Transmission Date: 20070707
  Serious: Yes (Other)
  Sender: FDA-Public Use
  Company Number: US-PFIZER INC-2007012931

PATIENT
  Sex: Female

DRUGS (2)
  1. REVATIO [Suspect]
     Indication: ULCER
  2. VIAGRA [Concomitant]
     Indication: ULCER
     Dates: start: 20060101, end: 20070212

REACTIONS (2)
  - HEADACHE [None]
  - PULMONARY HYPERTENSION [None]
